FAERS Safety Report 9757124 (Version 3)
Quarter: 2014Q3

REPORT INFORMATION
  Report Type: Spontaneous
  Country: US (occurrence: US)
  Receive Date: 20131213
  Receipt Date: 20140731
  Transmission Date: 20150326
  Serious: Yes (Other)
  Sender: FDA-Public Use
  Company Number: US-GILEAD-2013-0089999

PATIENT
  Age: 24 Year
  Sex: Male
  Weight: 61 kg

DRUGS (1)
  1. COMPLERA [Suspect]
     Active Substance: EMTRICITABINE\RILPIVIRINE HYDROCHLORIDE\TENOFOVIR DISOPROXIL FUMARATE
     Indication: HIV INFECTION
     Dosage: UNK
     Route: 048
     Dates: start: 20130129, end: 20130317

REACTIONS (8)
  - Liver function test abnormal [Recovered/Resolved]
  - Conjunctivitis [Recovered/Resolved]
  - Eosinophilic cellulitis [Recovered/Resolved]
  - Neutropenia [Recovered/Resolved]
  - Dermatitis bullous [Recovered/Resolved]
  - Dermatitis allergic [Recovered/Resolved]
  - Oral mucosal erythema [Recovered/Resolved]
  - Pathogen resistance [Unknown]

NARRATIVE: CASE EVENT DATE: 2013
